FAERS Safety Report 5413101-6 (Version None)
Quarter: 2007Q3

REPORT INFORMATION
  Report Type: 
  Country: None (occurrence: None)
  Receive Date: 20070809
  Receipt Date: 20070730
  Transmission Date: 20080115
  Serious: Yes (Other)
  Sender: FDA-Public Use
  Company Number: 07H-008-0312967-00

PATIENT
  Age: 15 Year
  Sex: Male
  Weight: 69 kg

DRUGS (10)
  1. PROPOFOL [Suspect]
     Indication: GENERAL ANAESTHESIA
     Dosage: 150 MG,
  2. MIDAZOLAM HCL [Suspect]
     Indication: GENERAL ANAESTHESIA
  3. FENTANYL CITRATE [Suspect]
     Indication: GENERAL ANAESTHESIA
     Dosage: 100 MCG,
  4. OXYGEN (OXYGEN) [Concomitant]
  5. NITROUS OXIDE (NITROUS OXIDE) [Concomitant]
  6. SEVOFLURANE [Concomitant]
  7. PARECOXIB (PARECOXIB) [Concomitant]
  8. ACETAMINOPHEN [Concomitant]
  9. MORPHINE [Concomitant]
  10. HEPARIN [Concomitant]

REACTIONS (4)
  - MIGRAINE WITH AURA [None]
  - MUSCULAR WEAKNESS [None]
  - POST PROCEDURAL COMPLICATION [None]
  - SENSORY LOSS [None]
